FAERS Safety Report 10188088 (Version 1)
Quarter: 2014Q2

REPORT INFORMATION
  Report Type: Spontaneous
  Country: US (occurrence: None)
  Receive Date: 20140521
  Receipt Date: 20140521
  Transmission Date: 20141212
  Serious: No
  Sender: FDA-Public Use
  Company Number: None

PATIENT
  Age: 69 Year
  Sex: Female
  Weight: 63.5 kg

DRUGS (1)
  1. LEVOFLOXACIN 500 MG TAB SUBSTITUED FOR LEVOQUIN M TE [Suspect]
     Indication: GINGIVITIS

REACTIONS (5)
  - Tendon pain [None]
  - Myalgia [None]
  - Arthralgia [None]
  - Neuralgia [None]
  - Abasia [None]
